FAERS Safety Report 7668296-0 (Version None)
Quarter: 2011Q3

REPORT INFORMATION
  Report Type: 
  Country: None (occurrence: None)
  Receive Date: 20110808
  Receipt Date: 20110725
  Transmission Date: 20111222
  Serious: Yes (Other)
  Sender: FDA-Public Use
  Company Number: ES-MYLANLABS-2011S1015645

PATIENT
  Age: 55 Year
  Sex: Female

DRUGS (3)
  1. THIOTEPA [Suspect]
     Indication: BONE MARROW TRANSPLANT
     Dosage: SINGLE INFUSION
     Route: 065
  2. CARBOPLATIN [Suspect]
     Indication: BONE MARROW TRANSPLANT
     Dosage: SINGLE INFUSION
     Route: 065
  3. CYCLOPHOSPHAMIDE [Suspect]
     Indication: BONE MARROW TRANSPLANT
     Dosage: SINGLE INFUSION
     Route: 065

REACTIONS (3)
  - SKIN EXFOLIATION [None]
  - DERMATITIS [None]
  - METAPLASIA [None]
